FAERS Safety Report 10076479 (Version 3)
Quarter: 2014Q2

REPORT INFORMATION
  Report Type: Spontaneous
  Country: US (occurrence: US)
  Receive Date: 20140414
  Receipt Date: 20140519
  Transmission Date: 20141212
  Serious: Yes (Hospitalization, Other)
  Sender: FDA-Public Use
  Company Number: US-GILEAD-2014-0099481

PATIENT
  Sex: Female

DRUGS (5)
  1. LETAIRIS [Suspect]
     Indication: PRODUCT USED FOR UNKNOWN INDICATION
     Dosage: 10 MG, QD
     Route: 048
     Dates: start: 20100816
  2. TYVASO [Concomitant]
  3. REVATIO [Concomitant]
  4. COUMADIN                           /00014802/ [Concomitant]
  5. COUMADIN                           /00014802/ [Concomitant]

REACTIONS (3)
  - Road traffic accident [Unknown]
  - Cervical vertebral fracture [Unknown]
  - Spinal fracture [Unknown]
